FAERS Safety Report 19873495 (Version 5)
Quarter: 2021Q4

REPORT INFORMATION
  Report Type: Report from Study
  Country: US (occurrence: US)
  Receive Date: 20210923
  Receipt Date: 20211119
  Transmission Date: 20220303
  Serious: Yes (Other)
  Sender: FDA-Public Use
  Company Number: US-SA-SAC20210811000570

PATIENT
  Age: 64 Year
  Sex: Female

DRUGS (5)
  1. DUPILUMAB [Suspect]
     Active Substance: DUPILUMAB
     Indication: Nasal polyps
     Dosage: 600 MG, 1X
     Route: 058
     Dates: start: 20210806, end: 20210806
  2. DUPILUMAB [Suspect]
     Active Substance: DUPILUMAB
     Dosage: 300 MG, QOW
     Route: 058
     Dates: start: 202108
  3. IMMUNE GLOBULIN NOS [Suspect]
     Active Substance: IMMUNE GLOBULIN NOS
     Dosage: UNK
     Dates: start: 2020
  4. IMMUNE GLOBULIN NOS [Suspect]
     Active Substance: IMMUNE GLOBULIN NOS
     Dosage: UNK
     Dates: start: 202103
  5. VITAMIN B [Concomitant]
     Active Substance: VITAMIN B
     Indication: Fatigue
     Dosage: UNK

REACTIONS (20)
  - Basal cell carcinoma [Not Recovered/Not Resolved]
  - Injection site pain [Unknown]
  - Injection site erythema [Unknown]
  - Hyperhidrosis [Recovered/Resolved]
  - Hot flush [Recovered/Resolved]
  - Urticaria [Recovered/Resolved]
  - Dry eye [Recovering/Resolving]
  - Erythema [Recovered/Resolved]
  - Feeling abnormal [Recovered/Resolved]
  - Lethargy [Recovered/Resolved]
  - Eyelid pain [Unknown]
  - Fatigue [Unknown]
  - Hair colour changes [Unknown]
  - Weight increased [Unknown]
  - Thirst [Unknown]
  - Post procedural complication [Unknown]
  - Sneezing [Unknown]
  - Influenza [Unknown]
  - Abnormal sensation in eye [Unknown]
  - Off label use [Unknown]

NARRATIVE: CASE EVENT DATE: 20210101
